FAERS Safety Report 21293540 (Version 5)
Quarter: 2022Q4

REPORT INFORMATION
  Report Type: Report from Study
  Country: FR (occurrence: None)
  Receive Date: 20220905
  Receipt Date: 20221001
  Transmission Date: 20230113
  Serious: Yes (Hospitalization, Other)
  Sender: FDA-Public Use
  Company Number: 2022A302159

PATIENT
  Age: 59 Year
  Sex: Female

DRUGS (27)
  1. INVESTIGATIONAL PRODUCT [Suspect]
     Active Substance: INVESTIGATIONAL PRODUCT
     Indication: Neoplasm
     Dosage: 475.0MG ONCE/SINGLE ADMINISTRATION
     Route: 042
     Dates: start: 20220404, end: 20220404
  2. INVESTIGATIONAL PRODUCT [Suspect]
     Active Substance: INVESTIGATIONAL PRODUCT
     Indication: Neoplasm
     Dosage: 475.0MG ONCE/SINGLE ADMINISTRATION
     Route: 042
     Dates: start: 20220406, end: 20220406
  3. INVESTIGATIONAL PRODUCT [Suspect]
     Active Substance: INVESTIGATIONAL PRODUCT
     Indication: Neoplasm
     Dosage: 480.0MG ONCE/SINGLE ADMINISTRATION
     Route: 042
     Dates: start: 20220408, end: 20220408
  4. INVESTIGATIONAL PRODUCT [Suspect]
     Active Substance: INVESTIGATIONAL PRODUCT
     Indication: Neoplasm
     Dosage: 480.0MG ONCE/SINGLE ADMINISTRATION
     Route: 042
     Dates: start: 20220412, end: 20220412
  5. INVESTIGATIONAL PRODUCT [Suspect]
     Active Substance: INVESTIGATIONAL PRODUCT
     Indication: Neoplasm
     Dosage: 480.0MG ONCE/SINGLE ADMINISTRATION
     Route: 042
     Dates: start: 20220419, end: 20220419
  6. INVESTIGATIONAL PRODUCT [Suspect]
     Active Substance: INVESTIGATIONAL PRODUCT
     Indication: Neoplasm
     Dosage: 480.0MG ONCE/SINGLE ADMINISTRATION
     Route: 042
     Dates: start: 20220425, end: 20220425
  7. INVESTIGATIONAL PRODUCT [Suspect]
     Active Substance: INVESTIGATIONAL PRODUCT
     Indication: Neoplasm
     Dosage: 480.0MG ONCE/SINGLE ADMINISTRATION
     Route: 042
     Dates: start: 20220502, end: 20220502
  8. INVESTIGATIONAL PRODUCT [Suspect]
     Active Substance: INVESTIGATIONAL PRODUCT
     Indication: Neoplasm
     Dosage: 480.0MG ONCE/SINGLE ADMINISTRATION
     Route: 042
     Dates: start: 20220510, end: 20220510
  9. INVESTIGATIONAL PRODUCT [Suspect]
     Active Substance: INVESTIGATIONAL PRODUCT
     Indication: Neoplasm
     Dosage: 480.0MG ONCE/SINGLE ADMINISTRATION
     Route: 042
     Dates: start: 20220517, end: 20220517
  10. INVESTIGATIONAL PRODUCT [Suspect]
     Active Substance: INVESTIGATIONAL PRODUCT
     Indication: Neoplasm
     Dosage: 480.0MG ONCE/SINGLE ADMINISTRATION
     Route: 042
     Dates: start: 20220525, end: 20220525
  11. INVESTIGATIONAL PRODUCT [Suspect]
     Active Substance: INVESTIGATIONAL PRODUCT
     Indication: Neoplasm
     Dosage: 480.0MG ONCE/SINGLE ADMINISTRATION
     Route: 042
     Dates: start: 20220531, end: 20220531
  12. INVESTIGATIONAL PRODUCT [Suspect]
     Active Substance: INVESTIGATIONAL PRODUCT
     Indication: Neoplasm
     Dosage: 480.0MG ONCE/SINGLE ADMINISTRATION
     Route: 042
     Dates: start: 20220608, end: 20220608
  13. INVESTIGATIONAL PRODUCT [Suspect]
     Active Substance: INVESTIGATIONAL PRODUCT
     Indication: Neoplasm
     Dosage: 480.0MG ONCE/SINGLE ADMINISTRATION
     Route: 042
     Dates: start: 20220614, end: 20220614
  14. INVESTIGATIONAL PRODUCT [Suspect]
     Active Substance: INVESTIGATIONAL PRODUCT
     Indication: Neoplasm
     Dosage: 480.0MG ONCE/SINGLE ADMINISTRATION
     Route: 042
     Dates: start: 20220621, end: 20220621
  15. INVESTIGATIONAL PRODUCT [Suspect]
     Active Substance: INVESTIGATIONAL PRODUCT
     Indication: Neoplasm
     Dosage: 480.0MG ONCE/SINGLE ADMINISTRATION
     Route: 042
     Dates: start: 20220627, end: 20220627
  16. INVESTIGATIONAL PRODUCT [Suspect]
     Active Substance: INVESTIGATIONAL PRODUCT
     Indication: Neoplasm
     Dosage: 480.0MG ONCE/SINGLE ADMINISTRATION
     Route: 042
     Dates: start: 20220704, end: 20220704
  17. INVESTIGATIONAL PRODUCT [Suspect]
     Active Substance: INVESTIGATIONAL PRODUCT
     Indication: Neoplasm
     Dosage: 480.0MG ONCE/SINGLE ADMINISTRATION
     Route: 042
     Dates: start: 20220711, end: 20220711
  18. INVESTIGATIONAL PRODUCT [Suspect]
     Active Substance: INVESTIGATIONAL PRODUCT
     Indication: Neoplasm
     Dosage: 480.0MG ONCE/SINGLE ADMINISTRATION
     Route: 042
     Dates: start: 20220718, end: 20220718
  19. INVESTIGATIONAL PRODUCT [Suspect]
     Active Substance: INVESTIGATIONAL PRODUCT
     Indication: Neoplasm
     Dosage: 480.0MG ONCE/SINGLE ADMINISTRATION
     Route: 042
     Dates: start: 20220725, end: 20220725
  20. INVESTIGATIONAL PRODUCT [Suspect]
     Active Substance: INVESTIGATIONAL PRODUCT
     Indication: Neoplasm
     Dosage: 480.0MG ONCE/SINGLE ADMINISTRATION
     Route: 042
     Dates: start: 20220801, end: 20220801
  21. DURVALUMAB [Suspect]
     Active Substance: DURVALUMAB
     Indication: Neoplasm
     Dosage: 1500.0MG ONCE/SINGLE ADMINISTRATION
     Route: 042
     Dates: start: 20220404, end: 20220404
  22. DURVALUMAB [Suspect]
     Active Substance: DURVALUMAB
     Indication: Neoplasm
     Dosage: 1500.0MG ONCE/SINGLE ADMINISTRATION
     Route: 042
     Dates: start: 20220502, end: 20220502
  23. DURVALUMAB [Suspect]
     Active Substance: DURVALUMAB
     Indication: Neoplasm
     Dosage: 1500.0MG ONCE/SINGLE ADMINISTRATION
     Route: 042
     Dates: start: 20220531, end: 20220531
  24. DURVALUMAB [Suspect]
     Active Substance: DURVALUMAB
     Indication: Neoplasm
     Dosage: 1500.0MG ONCE/SINGLE ADMINISTRATION
     Route: 042
     Dates: start: 20220627, end: 20220627
  25. DURVALUMAB [Suspect]
     Active Substance: DURVALUMAB
     Indication: Neoplasm
     Dosage: 1500.0MG ONCE/SINGLE ADMINISTRATION
     Route: 042
     Dates: start: 20220725, end: 20220725
  26. TIANEPTINE [Concomitant]
     Active Substance: TIANEPTINE
     Indication: Insomnia
     Route: 048
     Dates: start: 2010
  27. ELIQUIS [Concomitant]
     Active Substance: APIXABAN
     Indication: Thrombosis prophylaxis
     Route: 048
     Dates: start: 20220425

REACTIONS (1)
  - Drug-induced liver injury [Recovered/Resolved]

NARRATIVE: CASE EVENT DATE: 20220816
